FAERS Safety Report 8827747 (Version 2)
Quarter: 2012Q4

REPORT INFORMATION
  Report Type: 
  Country: US (occurrence: US)
  Receive Date: 20121008
  Receipt Date: 20121019
  Transmission Date: 20130627
  Serious: No
  Sender: FDA-Public Use
  Company Number: US-PFIZER INC-2012242020

PATIENT
  Age: 52 Year
  Sex: Female

DRUGS (5)
  1. GLUCOTROL [Suspect]
     Dosage: 20 mg, 2x/day
  2. GLIPIZIDE [Suspect]
     Dosage: 10 mg 2 tabs bid
     Route: 048
  3. ASPIR-81 [Suspect]
     Dosage: 1 tab daily
     Route: 048
  4. LISINOPRIL [Concomitant]
     Dosage: 10 mg, 1/2 tab po daily
     Route: 048
  5. JANUMET [Concomitant]
     Dosage: 2x/day (50-1000 Mg tabs, One tab po bid with meals)
     Route: 048

REACTIONS (2)
  - Blood glucose increased [Unknown]
  - Stress [Unknown]
